FAERS Safety Report 5418313-3 (Version None)
Quarter: 2007Q3

REPORT INFORMATION
  Report Type: 
  Country: None (occurrence: None)
  Receive Date: 20070817
  Receipt Date: 20070815
  Transmission Date: 20080115
  Serious: Yes (Death, Hospitalization)
  Sender: FDA-Public Use
  Company Number: US-BRISTOL-MYERS SQUIBB COMPANY-13878434

PATIENT
  Age: 75 Year
  Sex: Male
  Weight: 90 kg

DRUGS (7)
  1. ERBITUX [Suspect]
     Indication: COLON CANCER METASTATIC
     Dosage: FIRST INFUSION-LOADING DOSE 800 MG
     Route: 042
     Dates: start: 20070802, end: 20070802
  2. CAMPTOSAR [Concomitant]
  3. COUMADIN [Concomitant]
  4. PLAVIX [Concomitant]
     Route: 048
  5. PRAVASTATIN SODIUM [Concomitant]
     Route: 048
  6. ATENOLOL [Concomitant]
     Route: 048
  7. GLIPIZIDE [Concomitant]
     Route: 048

REACTIONS (4)
  - ASTHENIA [None]
  - HYPOTENSION [None]
  - MYOCARDIAL INFARCTION [None]
  - RASH [None]
